FAERS Safety Report 17356010 (Version 1)
Quarter: 2020Q1

REPORT INFORMATION
  Report Type: Spontaneous
  Country: AT (occurrence: AT)
  Receive Date: 20200131
  Receipt Date: 20200131
  Transmission Date: 20200409
  Serious: Yes (Hospitalization)
  Sender: FDA-Public Use
  Company Number: AT-ASTRAZENECA-2019SF50011

PATIENT
  Age: 27747 Day
  Sex: Male
  Weight: 97 kg

DRUGS (2)
  1. FASENRA [Suspect]
     Active Substance: BENRALIZUMAB
     Indication: ASTHMA
     Dosage: 30MG
     Route: 058
     Dates: start: 20181001, end: 20190826
  2. DOXORUBICIN [Concomitant]
     Active Substance: DOXORUBICIN
     Indication: POSTOPERATIVE CARE
     Dates: start: 20181217

REACTIONS (9)
  - Atrial fibrillation [Recovering/Resolving]
  - Purpura [Not Recovered/Not Resolved]
  - Blister [Not Recovered/Not Resolved]
  - Pustule [Not Recovered/Not Resolved]
  - Pemphigoid [Recovered/Resolved]
  - Therapeutic response unexpected [Not Recovered/Not Resolved]
  - Removal of foreign body [Not Recovered/Not Resolved]
  - Social problem [Not Recovered/Not Resolved]
  - Pruritus [Not Recovered/Not Resolved]

NARRATIVE: CASE EVENT DATE: 20181206
